FAERS Safety Report 6445701-9 (Version None)
Quarter: 2009Q4

REPORT INFORMATION
  Report Type: 
  Country: None (occurrence: None)
  Receive Date: 20091118
  Receipt Date: 20091118
  Transmission Date: 20100525
  Serious: Yes (Life-Threatening, Hospitalization, Disabling)
  Sender: FDA-Public Use
  Company Number: None

PATIENT
  Age: 28 Year
  Sex: Female
  Weight: 145.5 kg

DRUGS (1)
  1. TRAMADOL HCL [Suspect]
     Indication: DYSMENORRHOEA
     Dosage: 1 TO 2 TABLETS EVERY 6 HRS FOR PAIN  (@ 12:00PM  + @ 5:30 PM)
     Dates: start: 20091104

REACTIONS (4)
  - ARTERIAL RUPTURE [None]
  - CEREBROVASCULAR ACCIDENT [None]
  - THROMBOSIS [None]
  - VOMITING [None]
